FAERS Safety Report 7360804-2 (Version None)
Quarter: 2011Q1

REPORT INFORMATION
  Report Type: 
  Country: None (occurrence: None)
  Receive Date: 20110318
  Receipt Date: 20110314
  Transmission Date: 20110831
  Serious: Yes (Other)
  Sender: FDA-Public Use
  Company Number: US-AMGEN-USASP2011014118

PATIENT
  Age: 48 Year
  Sex: Female

DRUGS (4)
  1. XGEVA [Suspect]
     Indication: METASTASES TO BONE
     Dates: start: 20110126, end: 20110101
  2. MORPHINE [Concomitant]
     Dosage: UNK
  3. ATIVAN [Concomitant]
     Dosage: UNK
  4. FEMARA [Concomitant]
     Dosage: UNK

REACTIONS (4)
  - PAIN IN EXTREMITY [None]
  - MOBILITY DECREASED [None]
  - THERAPEUTIC RESPONSE DECREASED [None]
  - ACTIVITIES OF DAILY LIVING IMPAIRED [None]
